FAERS Safety Report 7983304 (Version 4)
Quarter: 2014Q3

REPORT INFORMATION
  Report Type: Spontaneous
  Country: US (occurrence: US)
  Receive Date: 20110609
  Receipt Date: 20140902
  Transmission Date: 20150326
  Serious: Yes (Other)
  Sender: FDA-Public Use
  Company Number: US-ASTRAZENECA-2011SE33918

PATIENT
  Age: 60 Year
  Sex: Male
  Weight: 140.6 kg

DRUGS (22)
  1. TOPROL XL [Suspect]
     Active Substance: METOPROLOL SUCCINATE
     Indication: ATRIAL FIBRILLATION
     Dosage: GENERIC
     Route: 048
  2. AMBIEN [Concomitant]
     Active Substance: ZOLPIDEM TARTRATE
     Route: 048
  3. DIGOXIN. [Concomitant]
     Active Substance: DIGOXIN
     Route: 048
  4. CATAPRES [Concomitant]
     Active Substance: CLONIDINE HYDROCHLORIDE
     Route: 048
  5. NEXIUM [Suspect]
     Active Substance: ESOMEPRAZOLE MAGNESIUM
     Indication: GASTROOESOPHAGEAL REFLUX DISEASE
     Route: 048
     Dates: end: 2013
  6. TOPROL XL [Suspect]
     Active Substance: METOPROLOL SUCCINATE
     Indication: BLOOD PRESSURE
     Route: 048
  7. TOPROL XL [Suspect]
     Active Substance: METOPROLOL SUCCINATE
     Indication: ATRIAL FIBRILLATION
     Route: 048
  8. TOPROL XL [Suspect]
     Active Substance: METOPROLOL SUCCINATE
     Indication: BLOOD PRESSURE
     Route: 048
  9. TOPROL XL [Suspect]
     Active Substance: METOPROLOL SUCCINATE
     Indication: ATRIAL FIBRILLATION
     Route: 048
  10. TOPROL XL [Suspect]
     Active Substance: METOPROLOL SUCCINATE
     Indication: BLOOD PRESSURE
     Dosage: GENERIC
     Route: 048
  11. VICODIN ES/NORCO [Concomitant]
     Indication: PAIN
     Dosage: 10 - 325 PRN
     Dates: start: 1978
  12. TOPROL XL [Suspect]
     Active Substance: METOPROLOL SUCCINATE
     Indication: BLOOD PRESSURE
     Route: 048
  13. HYDROCHLOROTHIAZIDE AND LISINOPRIL [Suspect]
     Active Substance: HYDROCHLOROTHIAZIDE\LISINOPRIL
     Dosage: 20  MG 2 DOSAGE FORM EVERY DAY
     Route: 048
  14. HYDROCHLOROTHIAZIDE AND LISINOPRIL [Suspect]
     Active Substance: HYDROCHLOROTHIAZIDE\LISINOPRIL
     Dosage: 20+12.5 MG DAILY
     Route: 048
  15. LISINOPRIL. [Suspect]
     Active Substance: LISINOPRIL
     Route: 048
     Dates: start: 20140506
  16. CYCLOBENZAPRINE HCL [Concomitant]
     Active Substance: CYCLOBENZAPRINE HYDROCHLORIDE
     Route: 048
  17. TOPROL XL [Suspect]
     Active Substance: METOPROLOL SUCCINATE
     Indication: ATRIAL FIBRILLATION
     Route: 048
  18. AMITRIPTYLINE HCL [Concomitant]
     Active Substance: AMITRIPTYLINE
     Route: 048
  19. NEXIUM [Suspect]
     Active Substance: ESOMEPRAZOLE MAGNESIUM
     Indication: GASTROOESOPHAGEAL REFLUX DISEASE
     Route: 048
  20. VICODIN ES/NORCO [Concomitant]
     Indication: PAIN
     Dosage: 7.5-750 MG, 1 DOSAGE FORM EVERY 4-6 HOURS AS NEEDED NOT TO EXCEED 5 TABLETS IN 24 HOURS
     Route: 048
  21. ASPIRIN. [Concomitant]
     Active Substance: ASPIRIN
     Route: 048
  22. HYDROCHLOROTHIAZIDE AND LISINOPRIL [Suspect]
     Active Substance: HYDROCHLOROTHIAZIDE\LISINOPRIL
     Dosage: 20+12.5 MG, 2 DOSAGE FORM EVERY DAY
     Route: 048

REACTIONS (33)
  - Atrial fibrillation [Unknown]
  - Chest discomfort [Unknown]
  - Visual impairment [Unknown]
  - Confusional state [Unknown]
  - Presyncope [Unknown]
  - Hiatus hernia [Unknown]
  - Gastrooesophageal reflux disease [Recovered/Resolved]
  - Chest pain [Unknown]
  - Palpitations [Unknown]
  - Myocardial infarction [Unknown]
  - Malignant hypertension [Unknown]
  - Asthenia [Unknown]
  - Erectile dysfunction [Unknown]
  - Myalgia [Unknown]
  - Snoring [Unknown]
  - Arthralgia [Unknown]
  - Intentional product misuse [Unknown]
  - Intermittent claudication [Unknown]
  - Nocturia [Unknown]
  - Peripheral coldness [Unknown]
  - Off label use [Unknown]
  - Coronary artery occlusion [Unknown]
  - Angina pectoris [Unknown]
  - Dyspnoea exertional [Unknown]
  - Pyrexia [Unknown]
  - Fatigue [Unknown]
  - Cardioactive drug level increased [Unknown]
  - Drug dose omission [Unknown]
  - Loss of consciousness [Unknown]
  - Pain [Unknown]
  - Dyspnoea [Unknown]
  - Back pain [Unknown]
  - Drug prescribing error [Unknown]

NARRATIVE: CASE EVENT DATE: 200903
